FAERS Safety Report 5369043-8 (Version None)
Quarter: 2007Q2

REPORT INFORMATION
  Report Type: 
  Country: None (occurrence: None)
  Receive Date: 20070625
  Receipt Date: 20070618
  Transmission Date: 20071010
  Serious: Yes (Disabling)
  Sender: FDA-Public Use
  Company Number: FR-BRISTOL-MYERS SQUIBB COMPANY-13820956

PATIENT

DRUGS (1)
  1. AMOXICILLIN [Suspect]
     Indication: DRUG EXPOSURE DURING PREGNANCY
     Route: 064

REACTIONS (3)
  - ENCEPHALOPATHY [None]
  - PSYCHOMOTOR SKILLS IMPAIRED [None]
  - TACHYCARDIA [None]
